FAERS Safety Report 23183771 (Version 2)
Quarter: 2023Q4

REPORT INFORMATION
  Report Type: Spontaneous
  Country: IN (occurrence: IN)
  Receive Date: 20231114
  Receipt Date: 20231123
  Transmission Date: 20240110
  Serious: Yes (Other)
  Sender: FDA-Public Use
  Company Number: IN-BAXTER-2023BAX035451

PATIENT
  Age: 27 Year
  Sex: Male

DRUGS (2)
  1. ACETAMINOPHEN [Suspect]
     Active Substance: ACETAMINOPHEN
     Indication: Pyrexia
     Route: 065
  2. ACETAMINOPHEN [Suspect]
     Active Substance: ACETAMINOPHEN
     Indication: Pain

REACTIONS (4)
  - Generalised bullous fixed drug eruption [Recovered/Resolved]
  - Dermatitis bullous [Unknown]
  - Rash papulosquamous [Unknown]
  - Skin erosion [Unknown]
